APPROVED DRUG PRODUCT: RANICLOR
Active Ingredient: CEFACLOR
Strength: EQ 187MG BASE
Dosage Form/Route: TABLET, CHEWABLE;ORAL
Application: A065092 | Product #002
Applicant: RANBAXY LABORATORIES LTD
Approved: Dec 22, 2003 | RLD: No | RS: No | Type: DISCN